FAERS Safety Report 8576826-X (Version None)
Quarter: 2012Q3

REPORT INFORMATION
  Report Type: 
  Country: None (occurrence: None)
  Receive Date: 20120807
  Receipt Date: 20120730
  Transmission Date: 20120928
  Serious: Yes (Other)
  Sender: FDA-Public Use
  Company Number: US-COVIDIEN/TYCO HEALTHCARE/MALLINCKRODT-T201202942

PATIENT
  Age: 22 Year
  Sex: Female
  Weight: 52.154 kg

DRUGS (1)
  1. EXALGO [Suspect]
     Indication: HEADACHE
     Dosage: 2 TABS, 8 MG
     Route: 048
     Dates: start: 20120625, end: 20120625

REACTIONS (2)
  - INTENTIONAL DRUG MISUSE [None]
  - DRUG DIVERSION [None]
